FAERS Safety Report 15865581 (Version 4)
Quarter: 2019Q1

REPORT INFORMATION
  Report Type: Spontaneous
  Country: US (occurrence: US)
  Receive Date: 20190125
  Receipt Date: 20190314
  Transmission Date: 20190417
  Serious: Yes (Hospitalization, Other)
  Sender: FDA-Public Use
  Company Number: US-AUROBINDO-AUR-APL-2019-002287

PATIENT

DRUGS (2)
  1. DEXTROMETHORPHAN+PHENYLEPHRINE 5/2.5MG/5ML [Suspect]
     Active Substance: DEXTROMETHORPHAN\PHENYLEPHRINE
     Indication: NASOPHARYNGITIS
     Dosage: UNK
     Route: 065
     Dates: start: 20180505
  2. DEXTROMETHORPHAN+PHENYLEPHRINE 5/2.5MG/5ML [Suspect]
     Active Substance: DEXTROMETHORPHAN\PHENYLEPHRINE
     Indication: COUGH

REACTIONS (4)
  - Hypoxia [Recovering/Resolving]
  - Accidental overdose [Recovered/Resolved]
  - Mental status changes [Recovering/Resolving]
  - Vomiting [Recovering/Resolving]

NARRATIVE: CASE EVENT DATE: 20180505
